FAERS Safety Report 9241796 (Version 4)
Quarter: 2013Q4

REPORT INFORMATION
  Report Type: Report from Study
  Country: BR (occurrence: BR)
  Receive Date: 20130419
  Receipt Date: 20131010
  Transmission Date: 20140711
  Serious: Yes (Other)
  Sender: FDA-Public Use
  Company Number: PHHY2013BR037016

PATIENT
  Sex: Female

DRUGS (2)
  1. FORASEQ [Suspect]
     Indication: ASTHMA
     Dosage: 1 DF, BID
  2. FORASEQ [Suspect]
     Dosage: 2 DF, QD (ONCE A DAY)

REACTIONS (6)
  - Depression [Recovered/Resolved]
  - Memory impairment [Recovered/Resolved]
  - Bronchitis [Unknown]
  - Sinusitis [Recovered/Resolved]
  - Headache [Recovered/Resolved]
  - Heart rate increased [Not Recovered/Not Resolved]
